FAERS Safety Report 4279236-9 (Version None)
Quarter: 2004Q1

REPORT INFORMATION
  Report Type: 
  Country: None (occurrence: None)
  Receive Date: 20040126
  Receipt Date: 20040126
  Transmission Date: 20041129
  Serious: Yes (Death, Hospitalization)
  Sender: FDA-Public Use
  Company Number: None

PATIENT
  Age: 59 Year
  Weight: 77.1 kg

DRUGS (6)
  1. GEMZAR [Suspect]
     Indication: BLADDER CANCER
     Dosage: 800 MG/M2   D1.8   INTRAVENOUS
     Route: 042
     Dates: start: 20030709, end: 20030820
  2. CARBOPLATIN [Suspect]
     Indication: BLADDER CANCER
     Dosage: 330 MG   D1   INTRAVENOUS
     Route: 042
     Dates: start: 20030702, end: 20030813
  3. PENTASA [Concomitant]
  4. ATENOLOL [Concomitant]
  5. VICODIN [Concomitant]
  6. POTASSIUM + MAGNESIUM SUPPLEMENTS [Concomitant]

REACTIONS (3)
  - FUNGAL PERITONITIS [None]
  - MULTI-ORGAN FAILURE [None]
  - SEPSIS [None]
